FAERS Safety Report 4819081-6 (Version None)
Quarter: 2005Q4

REPORT INFORMATION
  Report Type: 
  Country: None (occurrence: None)
  Receive Date: 20051103
  Receipt Date: 20050801
  Transmission Date: 20060501
  Serious: Yes (Other)
  Sender: FDA-Public Use
  Company Number: GB-GILEAD-2005-0008586

PATIENT
  Sex: Male
  Weight: 80 kg

DRUGS (1)
  1. VIREAD [Suspect]
     Indication: HIV INFECTION
     Route: 048
     Dates: start: 20040822, end: 20050801

REACTIONS (3)
  - BLOOD CREATININE INCREASED [None]
  - PROTEINURIA [None]
  - RENAL IMPAIRMENT [None]
